FAERS Safety Report 8922837 (Version 2)
Quarter: 2013Q2

REPORT INFORMATION
  Report Type: Report from Study
  Country: CA (occurrence: CA)
  Receive Date: 20121123
  Receipt Date: 20130513
  Transmission Date: 20140414
  Serious: Yes (Hospitalization, Other)
  Sender: FDA-Public Use
  Company Number: CA-JNJFOC-20120802875

PATIENT
  Age: 34 Year
  Sex: Female
  Weight: 100 kg

DRUGS (6)
  1. REMICADE [Suspect]
     Indication: CROHN^S DISEASE
     Route: 042
     Dates: start: 20120222
  2. RANITIDINE [Concomitant]
     Route: 065
  3. CIPRO [Concomitant]
     Route: 065
  4. ENTOCORT [Concomitant]
     Route: 065
  5. DETROL [Concomitant]
     Route: 065
  6. CHOLESTYRAMINE [Concomitant]
     Route: 065

REACTIONS (4)
  - Small intestinal resection [Recovering/Resolving]
  - Abdominal pain lower [Not Recovered/Not Resolved]
  - Appendicectomy [Recovering/Resolving]
  - Post procedural infection [Recovering/Resolving]
